FAERS Safety Report 8070896-3 (Version None)
Quarter: 2012Q1

REPORT INFORMATION
  Report Type: 
  Country: None (occurrence: None)
  Receive Date: 20120125
  Receipt Date: 20120116
  Transmission Date: 20120608
  Serious: Yes (Hospitalization)
  Sender: FDA-Public Use
  Company Number: AU-ROCHE-1024545

PATIENT
  Sex: Female
  Weight: 82.6 kg

DRUGS (4)
  1. VEMURAFENIB [Suspect]
     Indication: MALIGNANT MELANOMA
     Route: 048
     Dates: start: 20111206, end: 20111218
  2. IMODIUM [Concomitant]
     Dates: start: 20111206
  3. VEMURAFENIB [Suspect]
     Dates: start: 20111218
  4. GDC-0973 (MEK INHIBITOR) [Suspect]
     Indication: MALIGNANT MELANOMA
     Dosage: LAST DOSE PRIOR TO SAE WAS ON 16/DEC/2011
     Route: 048
     Dates: start: 20111206

REACTIONS (2)
  - FACE OEDEMA [None]
  - RASH MACULO-PAPULAR [None]
